FAERS Safety Report 8033103-3 (Version None)
Quarter: 2012Q1

REPORT INFORMATION
  Report Type: 
  Country: None (occurrence: None)
  Receive Date: 20120110
  Receipt Date: 20120110
  Transmission Date: 20120608
  Serious: Yes (Other)
  Sender: FDA-Public Use
  Company Number: None

PATIENT
  Sex: Male
  Weight: 93.893 kg

DRUGS (4)
  1. ASPIRIN [Concomitant]
  2. AMLODIPINE [Concomitant]
  3. RAMIPRIL [Concomitant]
  4. LIPITOR [Suspect]
     Indication: CEREBROVASCULAR ACCIDENT
     Dosage: 1 TAB
     Route: 048
     Dates: start: 20111107, end: 20111220

REACTIONS (2)
  - MUSCLE SPASMS [None]
  - DYSTONIA [None]
